FAERS Safety Report 7304166-5 (Version None)
Quarter: 2011Q1

REPORT INFORMATION
  Report Type: 
  Country: None (occurrence: None)
  Receive Date: 20110221
  Receipt Date: 20110103
  Transmission Date: 20110831
  Serious: Yes (Other)
  Sender: FDA-Public Use
  Company Number: US-BAYER-200942576NA

PATIENT
  Sex: Female
  Weight: 63.636 kg

DRUGS (12)
  1. YAZ [Suspect]
     Indication: CONTRACEPTION
     Dates: start: 20070101, end: 20090101
  2. CONCERTA [Concomitant]
     Dates: start: 20071201
  3. YASMIN [Suspect]
     Indication: PRODUCT USED FOR UNKNOWN INDICATION
     Dosage: UNK
     Dates: start: 20090818
  4. CLARITIN [Concomitant]
  5. MULTI-VITAMIN [Concomitant]
     Route: 048
  6. OCELLA [Suspect]
     Indication: PRODUCT USED FOR UNKNOWN INDICATION
     Route: 048
     Dates: start: 20090703
  7. ALEVE [Concomitant]
  8. VICODIN [Concomitant]
     Route: 048
  9. YAZ [Suspect]
     Indication: ACNE
  10. CYMBALTA [Concomitant]
  11. ADVIL [Concomitant]
  12. PHENERGAN [Concomitant]
     Route: 048

REACTIONS (5)
  - APHAGIA [None]
  - ABDOMINAL TENDERNESS [None]
  - CHOLECYSTITIS CHRONIC [None]
  - ABDOMINAL PAIN UPPER [None]
  - HAEMATEMESIS [None]
